FAERS Safety Report 18513547 (Version 1)
Quarter: 2020Q4

REPORT INFORMATION
  Report Type: Report from Study
  Country: AR (occurrence: AR)
  Receive Date: 20201118
  Receipt Date: 20201118
  Transmission Date: 20210114
  Serious: Yes (Hospitalization)
  Sender: FDA-Public Use
  Company Number: AR-JNJFOC-20201120269

PATIENT
  Age: 83 Year
  Sex: Male
  Weight: 84 kg

DRUGS (1)
  1. ERLEADA [Suspect]
     Active Substance: APALUTAMIDE
     Indication: HORMONE-DEPENDENT PROSTATE CANCER
     Route: 048
     Dates: start: 20200820

REACTIONS (2)
  - Inflammation [Unknown]
  - Hypersensitivity [Unknown]

NARRATIVE: CASE EVENT DATE: 20201016
